FAERS Safety Report 7708648 (Version 2)
Quarter: 2013Q4

REPORT INFORMATION
  Report Type: Spontaneous
  Country: US (occurrence: US)
  Receive Date: 20101214
  Receipt Date: 20131115
  Transmission Date: 20140711
  Serious: Yes (Other)
  Sender: FDA-Public Use
  Company Number: US-ASTRAZENECA-2010SE14181

PATIENT
  Age: 682 Month
  Sex: Female
  Weight: 59 kg

DRUGS (13)
  1. CRESTOR [Suspect]
     Indication: BLOOD CHOLESTEROL INCREASED
     Route: 048
     Dates: start: 2007, end: 201003
  2. NEXIUM [Suspect]
     Indication: GASTROOESOPHAGEAL REFLUX DISEASE
     Route: 048
     Dates: start: 2007
  3. TOPAMAX [Concomitant]
     Indication: MIGRAINE
  4. FIORICET [Concomitant]
     Indication: MIGRAINE
     Dosage: 1 TO 2 PILLS PRN
  5. ZOLOFT [Concomitant]
     Indication: DEPRESSION
  6. XANAX [Concomitant]
     Indication: ANXIETY
  7. ZYRTEC [Concomitant]
     Indication: HYPERSENSITIVITY
  8. OMEGA 3 AND 6 [Concomitant]
     Indication: SUPPLEMENTATION THERAPY
  9. CALCIUMCITRATE [Concomitant]
     Indication: SUPPLEMENTATION THERAPY
  10. VITAMIN D3 [Concomitant]
     Indication: SUPPLEMENTATION THERAPY
  11. MAGNESIUM [Concomitant]
     Indication: IRRITABLE BOWEL SYNDROME
  12. MAGNESIUM [Concomitant]
     Indication: CONSTIPATION
  13. MAGNESIUM [Concomitant]
     Indication: SUPPLEMENTATION THERAPY

REACTIONS (14)
  - Hyperthyroidism [Recovered/Resolved]
  - Malaise [Recovered/Resolved with Sequelae]
  - Oedema peripheral [Recovered/Resolved with Sequelae]
  - Limb injury [Recovered/Resolved with Sequelae]
  - Arthropathy [Recovered/Resolved with Sequelae]
  - Post procedural hypothyroidism [Unknown]
  - Arthropathy [Unknown]
  - Joint injury [Recovered/Resolved with Sequelae]
  - Blood cholesterol increased [Not Recovered/Not Resolved]
  - Myalgia [Recovered/Resolved with Sequelae]
  - Nausea [Not Recovered/Not Resolved]
  - Pain in extremity [Unknown]
  - Intentional drug misuse [Unknown]
  - Drug ineffective [Not Recovered/Not Resolved]
